FAERS Safety Report 9552178 (Version 3)
Quarter: 2014Q2

REPORT INFORMATION
  Report Type: Report from Study
  Country: CN (occurrence: CN)
  Receive Date: 20130925
  Receipt Date: 20140513
  Transmission Date: 20141212
  Serious: Yes (Death, Other)
  Sender: FDA-Public Use
  Company Number: PHHY2013CN106041

PATIENT
  Age: 21 Year
  Sex: Female

DRUGS (7)
  1. GLIVEC [Suspect]
     Indication: ACUTE LYMPHOCYTIC LEUKAEMIA
     Dosage: 400 MG, QD
     Route: 048
     Dates: start: 20120202
  2. GLIVEC [Suspect]
     Dosage: 400 MG, QD
     Route: 048
     Dates: end: 201207
  3. GLIVEC [Suspect]
     Dosage: 400 MG, QD
     Route: 048
     Dates: start: 20121119, end: 20130719
  4. GLIVEC [Suspect]
     Dosage: 400 MG, UNK
     Route: 048
     Dates: end: 20130724
  5. DASATINIB [Suspect]
     Indication: ACUTE LYMPHOCYTIC LEUKAEMIA
  6. MTX [Concomitant]
  7. DAUNOMYCIN [Concomitant]

REACTIONS (7)
  - Cerebral haemorrhage [Fatal]
  - Haematochezia [Not Recovered/Not Resolved]
  - Acute lymphocytic leukaemia recurrent [Not Recovered/Not Resolved]
  - Toothache [Not Recovered/Not Resolved]
  - Pyrexia [Not Recovered/Not Resolved]
  - Bone pain [Not Recovered/Not Resolved]
  - Blood count abnormal [Not Recovered/Not Resolved]
